FAERS Safety Report 25682139 (Version 2)
Quarter: 2025Q3

REPORT INFORMATION
  Report Type: Report from Study
  Country: CN (occurrence: CN)
  Receive Date: 20250814
  Receipt Date: 20250825
  Transmission Date: 20251021
  Serious: Yes (Hospitalization, Other)
  Sender: TAKEDA
  Company Number: CN-TAKEDA-2025TUS071982

PATIENT
  Sex: Female

DRUGS (2)
  1. IXAZOMIB [Suspect]
     Active Substance: IXAZOMIB
     Indication: Plasma cell myeloma
  2. CARFILZOMIB [Suspect]
     Active Substance: CARFILZOMIB
     Indication: Plasma cell myeloma

REACTIONS (21)
  - Cardiac disorder [Unknown]
  - Chest discomfort [Unknown]
  - Palpitations [Unknown]
  - Hyperpyrexia [Unknown]
  - Loss of consciousness [Recovered/Resolved with Sequelae]
  - Joint swelling [Unknown]
  - Peripheral swelling [Unknown]
  - Blood immunoglobulin A increased [Unknown]
  - Electrocardiogram QT prolonged [Unknown]
  - Ventricular hypertrophy [Unknown]
  - Dyspnoea [Unknown]
  - White blood cell count decreased [Unknown]
  - Arrhythmia [Unknown]
  - Vomiting [Unknown]
  - Platelet count decreased [Unknown]
  - Drug ineffective [Unknown]
  - Peripheral coldness [Unknown]
  - Urinary incontinence [Unknown]
  - Cold sweat [Unknown]
  - Asthenia [Unknown]
  - Diarrhoea [Recovered/Resolved]
